FAERS Safety Report 24138313 (Version 1)
Quarter: 2024Q3

REPORT INFORMATION
  Report Type: Spontaneous
  Country: RU (occurrence: RU)
  Receive Date: 20240725
  Receipt Date: 20240725
  Transmission Date: 20241016
  Serious: Yes (Other)
  Sender: NOVARTIS
  Company Number: RU-002147023-NVSC2024RU150914

PATIENT

DRUGS (2)
  1. CANAKINUMAB [Suspect]
     Active Substance: CANAKINUMAB
     Indication: Chronic infantile neurological cutaneous and articular syndrome
     Dosage: UNK
     Route: 065
  2. CANAKINUMAB [Suspect]
     Active Substance: CANAKINUMAB
     Indication: Chronic infantile neurological cutaneous and articular syndrome

REACTIONS (2)
  - Chronic infantile neurological cutaneous and articular syndrome [Unknown]
  - Condition aggravated [Unknown]
